FAERS Safety Report 9257490 (Version 2)
Quarter: 2014Q1

REPORT INFORMATION
  Report Type: Spontaneous
  Country: US (occurrence: None)
  Receive Date: 20121212
  Receipt Date: 20130314
  Transmission Date: 20141002
  Serious: No
  Sender: FDA-Public Use
  Company Number: 1209USA005926

PATIENT
  Sex: Female
  Weight: 94.8 kg

DRUGS (3)
  1. VICTRELIS [Suspect]
     Indication: HEPATITIS C
     Route: 048
     Dates: start: 20120829
  2. REBETOL [Concomitant]
  3. PEGASYS (PEGINTERFERON ALFA-2A) [Concomitant]

REACTIONS (9)
  - Haematocrit decreased [None]
  - Haemoglobin decreased [None]
  - Fatigue [None]
  - Asthenia [None]
  - Alopecia [None]
  - Fatigue [None]
  - Nausea [None]
  - Depression [None]
  - Crying [None]
